FAERS Safety Report 8375542-7 (Version None)
Quarter: 2012Q1

REPORT INFORMATION
  Report Type: 
  Country: None (occurrence: None)
  Receive Date: 20120323
  Receipt Date: 20110308
  Transmission Date: 20120608
  Serious: Yes (Other)
  Sender: FDA-Public Use
  Company Number: 163-21880-11031117

PATIENT
  Age: 67 Year
  Sex: Female

DRUGS (4)
  1. REVLIMID [Suspect]
     Indication: MULTIPLE MYELOMA
     Dosage: 25 MG, 1 IN 1 D, PO; 25MG-15MG, DAILY, PO; 25 MG, DAILY X 21/28 DAYS, PO
     Route: 048
     Dates: start: 20100701
  2. REVLIMID [Suspect]
     Indication: MULTIPLE MYELOMA
     Dosage: 25 MG, 1 IN 1 D, PO; 25MG-15MG, DAILY, PO; 25 MG, DAILY X 21/28 DAYS, PO
     Route: 048
     Dates: start: 20091001
  3. REVLIMID [Suspect]
     Indication: MULTIPLE MYELOMA
     Dosage: 25 MG, 1 IN 1 D, PO; 25MG-15MG, DAILY, PO; 25 MG, DAILY X 21/28 DAYS, PO
     Route: 048
     Dates: start: 20110101
  4. ASPIRIN [Suspect]
     Indication: THROMBOSIS PROPHYLAXIS
     Dosage: 81 MG, DAILY,

REACTIONS (6)
  - MULTIPLE MYELOMA [None]
  - CONTUSION [None]
  - SKIN MASS [None]
  - PAIN [None]
  - BLOOD TEST ABNORMAL [None]
  - MUSCLE SPASMS [None]
